FAERS Safety Report 7999723-7 (Version None)
Quarter: 2011Q4

REPORT INFORMATION
  Report Type: 
  Country: None (occurrence: None)
  Receive Date: 20111221
  Receipt Date: 20111208
  Transmission Date: 20120403
  Serious: Yes (Hospitalization)
  Sender: FDA-Public Use
  Company Number: JP-MYLANLABS-2011S1025725

PATIENT
  Age: 65 Year
  Sex: Female

DRUGS (4)
  1. DOXIFLURIDINE [Concomitant]
     Indication: BREAST CANCER METASTATIC
     Route: 065
  2. ALENDRONIC ACID [Concomitant]
     Indication: BREAST CANCER METASTATIC
     Route: 065
  3. LETROZOLE [Suspect]
     Indication: BREAST CANCER METASTATIC
     Dosage: 2.5MG
     Route: 065
  4. MEDROXYPROGESTERONE [Concomitant]
     Indication: BREAST CANCER METASTATIC
     Route: 065

REACTIONS (7)
  - VOMITING [None]
  - HYPERCALCAEMIA [None]
  - ARTHRALGIA [None]
  - MYALGIA [None]
  - DECREASED APPETITE [None]
  - DEHYDRATION [None]
  - FATIGUE [None]
